FAERS Safety Report 10056977 (Version 2)
Quarter: 2014Q2

REPORT INFORMATION
  Report Type: Spontaneous
  Country: US (occurrence: US)
  Receive Date: 20140403
  Receipt Date: 20140502
  Transmission Date: 20141212
  Serious: Yes (Other)
  Sender: FDA-Public Use
  Company Number: US-LUNDBECK-DKLU1098775

PATIENT
  Age: 9 Year
  Sex: Male

DRUGS (4)
  1. SABRIL     (TABLET) [Suspect]
     Indication: PRODUCT USED FOR UNKNOWN INDICATION
  2. SABRIL     (TABLET) [Suspect]
  3. TRILEPTAL [Concomitant]
     Indication: PRODUCT USED FOR UNKNOWN INDICATION
  4. TRILEPTAL [Concomitant]

REACTIONS (2)
  - Visual field defect [Unknown]
  - Visual field defect [Unknown]
